FAERS Safety Report 6060799-8 (Version None)
Quarter: 2009Q1

REPORT INFORMATION
  Report Type: 
  Country: None (occurrence: None)
  Receive Date: 20090202
  Receipt Date: 20090127
  Transmission Date: 20090719
  Serious: Yes (Disabling, Other)
  Sender: FDA-Public Use
  Company Number: PHHY2008CA24305

PATIENT
  Sex: Male

DRUGS (2)
  1. SANDOSTATIN LAR [Suspect]
     Indication: ACROMEGALY
     Dosage: 30 MG EVERY 4 WEEKS
     Route: 030
     Dates: start: 20070117, end: 20081029
  2. CEPHALEXIN [Concomitant]
     Dosage: 500 MG, QID
     Route: 048
     Dates: start: 20080926

REACTIONS (3)
  - EMBOLISM VENOUS [None]
  - PAIN [None]
  - PHLEBITIS [None]
